FAERS Safety Report 13549626 (Version 5)
Quarter: 2019Q4

REPORT INFORMATION
  Report Type: Report from Study
  Country: CA (occurrence: CA)
  Receive Date: 20170516
  Receipt Date: 20191104
  Transmission Date: 20200122
  Serious: Yes (Other)
  Sender: FDA-Public Use
  Company Number: PHHY2017CA071676

PATIENT
  Sex: Male

DRUGS (1)
  1. GILENYA [Suspect]
     Active Substance: FINGOLIMOD HYDROCHLORIDE
     Indication: PRODUCT USED FOR UNKNOWN INDICATION
     Dosage: UNK
     Route: 048
     Dates: start: 20150813

REACTIONS (7)
  - Stress [Unknown]
  - Dysarthria [Unknown]
  - Vision blurred [Unknown]
  - Sensory loss [Unknown]
  - Memory impairment [Unknown]
  - Thyroid cancer [Unknown]
  - Confusional state [Unknown]
